FAERS Safety Report 18418545 (Version 3)
Quarter: 2020Q4

REPORT INFORMATION
  Report Type: Spontaneous
  Country: DE (occurrence: DE)
  Receive Date: 20201023
  Receipt Date: 20201202
  Transmission Date: 20210114
  Serious: Yes (Other)
  Sender: FDA-Public Use
  Company Number: NVSC2020DE283668

PATIENT

DRUGS (19)
  1. METHOTREXATE. [Suspect]
     Active Substance: METHOTREXATE
     Dosage: UNK, , ICV (INTRACEREBROVENTRICULAR CHEMOTHERAPY)
     Route: 065
  2. METHOTREXATE. [Suspect]
     Active Substance: METHOTREXATE
     Dosage: 2.5 MG, CYCLIC (EVERY 3 WEEKS (CYCLE 4 PLUS 6, DAY 3-5)
     Route: 065
  3. PREDNISOLONE. [Suspect]
     Active Substance: PREDNISOLONE
     Dosage: 3 MG, CYCLIC,ICV, EVERY 2 WEEKS (CYCLE 5, DAY 2-4) WITH METHOTREXATE
     Route: 065
  4. METHOTREXATE. [Suspect]
     Active Substance: METHOTREXATE
     Indication: CENTRAL NERVOUS SYSTEM LYMPHOMA
     Dosage: UNK, SYSTEMIC HIGH DOSE
     Route: 041
  5. METHOTREXATE. [Suspect]
     Active Substance: METHOTREXATE
     Dosage: 4000 MG/M2, CYCLIC,ERY 2 WEEKS (CYCLE 1-3, DAY 1)
     Route: 042
  6. METHOTREXATE. [Suspect]
     Active Substance: METHOTREXATE
     Dosage: 2.5 MG, CYCLIC (EVERY 2 WEEKS (CYCLE 5, DAY 2-4 (WITH PREDNISOLONE)
     Route: 065
  7. IFOSFAMIDE. [Suspect]
     Active Substance: IFOSFAMIDE
     Indication: CENTRAL NERVOUS SYSTEM LYMPHOMA
     Dosage: 800 MG/M2, WITH SODIUM 2-MERCAPTOETHANE SULFONATE PROTECTION
     Route: 041
  8. IFOSFAMIDE. [Suspect]
     Active Substance: IFOSFAMIDE
     Dosage: 800 MG/M2, CYCLIC, EVERY 2 WEEKS (CYCLE 1-3, DAY 2-4)
     Route: 042
  9. SULFAMETHOXAZOLE,TRIMETHOPRIM [Suspect]
     Active Substance: SULFAMETHOXAZOLE\TRIMETHOPRIM
     Indication: PROPHYLAXIS
     Dosage: UNK UNK, CYCLIC(AT EACH CYCLE)
     Route: 065
  10. ACICLOVIR [Suspect]
     Active Substance: ACYCLOVIR
     Indication: PROPHYLAXIS
     Dosage: UNK UNK, CYCLIC(AT EACH CYCLE)
     Route: 065
  11. ARA-C [Suspect]
     Active Substance: CYTARABINE
     Dosage: 3000 MG/M2, CYCLIC, EVERY 3 WEEKS (CYCLE 4 PLUS 6, DAY 1-2)
     Route: 042
  12. METHOTREXATE. [Suspect]
     Active Substance: METHOTREXATE
     Dosage: 4000 MG/M2, CYCLIC,EVERY 2 WEEKS (CYCLE 5, DAY 1)
     Route: 042
  13. ARA-C [Suspect]
     Active Substance: CYTARABINE
     Dosage: 10 MG, CYCLIC,EVERY 3 WEEKS (CYCLE 4 PLUS 6, DAY 6)
     Route: 065
  14. GRANULOCYTE COLONY STIMULATING FACTOR [Suspect]
     Active Substance: GRANULOCYTE COLONY-STIMULATING FACTOR NOS
     Indication: PROPHYLAXIS
     Dosage: UNK, CYCLIC(AT EACH CYCLE)
     Route: 065
  15. RITUXIMAB. [Suspect]
     Active Substance: RITUXIMAB
     Indication: CENTRAL NERVOUS SYSTEM LYMPHOMA
     Dosage: 375 MG/M2, CYCLIC, EVERY 2 WEEKS (CYCLE 1-3, DAY 0)
     Route: 042
  16. IFOSFAMIDE. [Suspect]
     Active Substance: IFOSFAMIDE
     Dosage: 800 MG/M2, CYCLIC, EVERY 2 WEEKS (CYCLE 5, DAY 2-4)
     Route: 042
  17. ARA-C [Suspect]
     Active Substance: CYTARABINE
     Dosage: 10 MG, CYCLIC, EVERY 2 WEEKS (CYCLE 5, DAY 5)
     Route: 065
  18. PREDNISOLONE. [Suspect]
     Active Substance: PREDNISOLONE
     Indication: CENTRAL NERVOUS SYSTEM LYMPHOMA
     Dosage: 3 MG, CYCLIC ICV, EVERY 3 WEEKS (CYCLE 4 PLUS 6, DAY 3-5) WITH METHOTREXATE
     Route: 065
  19. ARA-C [Suspect]
     Active Substance: CYTARABINE
     Indication: CENTRAL NERVOUS SYSTEM LYMPHOMA
     Dosage: 3000 MG/M2 BODY SURFACE AREA
     Route: 041

REACTIONS (3)
  - Disease progression [Unknown]
  - Central nervous system lymphoma [Unknown]
  - Malignant neoplasm progression [Unknown]
